FAERS Safety Report 4475211-X (Version None)
Quarter: 2004Q4

REPORT INFORMATION
  Report Type: 
  Country: None (occurrence: None)
  Receive Date: 20041013
  Receipt Date: 20041013
  Transmission Date: 20050328
  Serious: Yes (Life-Threatening)
  Sender: FDA-Public Use
  Company Number: None

PATIENT
  Age: 78 Year
  Sex: Female

DRUGS (2)
  1. MEPERIDINE HCL [Suspect]
     Indication: SEDATION
     Dosage: 50 MG ONCE IV
     Route: 042
     Dates: start: 20040223, end: 20040223
  2. MIDAZOLAM HCL [Suspect]
     Dosage: 2 MG ONCE IV
     Route: 042

REACTIONS (4)
  - OXYGEN SATURATION DECREASED [None]
  - PROCEDURAL COMPLICATION [None]
  - RESPIRATORY RATE DECREASED [None]
  - STRIDOR [None]
